FAERS Safety Report 10777824 (Version 3)
Quarter: 2016Q2

REPORT INFORMATION
  Report Type: Report from Study
  Country: GB (occurrence: GB)
  Receive Date: 20150209
  Receipt Date: 20160531
  Transmission Date: 20160815
  Serious: Yes (Hospitalization)
  Sender: FDA-Public Use
  Company Number: GB-MERCK-1502GBR002671

PATIENT
  Age: 48 Year
  Sex: Male

DRUGS (2)
  1. LENALIDOMIDE [Suspect]
     Active Substance: LENALIDOMIDE
     Indication: PLASMA CELL MYELOMA
     Dosage: 10 MG, CYCLICAL (DAY 1-21)
     Route: 048
     Dates: start: 20131008
  2. VORINOSTAT [Suspect]
     Active Substance: VORINOSTAT
     Indication: PLASMA CELL MYELOMA
     Dosage: 300 MG, CYCLICAL (DAY 1-7 AND DAY 15-21)
     Route: 048
     Dates: start: 20140812

REACTIONS (1)
  - Intervertebral discitis [Recovered/Resolved with Sequelae]

NARRATIVE: CASE EVENT DATE: 20150201
